FAERS Safety Report 8957725 (Version 1)
Quarter: 2012Q4

REPORT INFORMATION
  Report Type: 
  Country: US (occurrence: US)
  Receive Date: 20121211
  Receipt Date: 20121211
  Transmission Date: 20130627
  Serious: No
  Sender: FDA-Public Use
  Company Number: US-PFIZER INC-2012306230

PATIENT

DRUGS (3)
  1. SEPTRA [Suspect]
     Dosage: UNK
  2. LEVOFLOXACIN [Suspect]
     Dosage: UNK
  3. NORFLEX [Suspect]
     Dosage: UNK

REACTIONS (1)
  - Abdominal discomfort [Unknown]
